FAERS Safety Report 6535776-0 (Version None)
Quarter: 2010Q1

REPORT INFORMATION
  Report Type: 
  Country: None (occurrence: None)
  Receive Date: 20100113
  Receipt Date: 20100108
  Transmission Date: 20100710
  Serious: Yes (Other)
  Sender: FDA-Public Use
  Company Number: US-SANOFI-AVENTIS-A03200904666

PATIENT
  Age: 68 Year
  Sex: Male
  Weight: 83.18 kg

DRUGS (6)
  1. DRONEDARONE HCL [Suspect]
     Indication: ATRIAL FIBRILLATION
     Dosage: UNIT DOSE: 400 MG
     Route: 048
     Dates: start: 20090814, end: 20091001
  2. LIPITOR [Concomitant]
     Route: 065
     Dates: start: 20040501, end: 20090701
  3. ATORVASTATIN [Concomitant]
     Route: 065
     Dates: start: 20090701, end: 20090927
  4. TOPROL-XL [Concomitant]
     Indication: BLOOD PRESSURE MANAGEMENT
     Route: 065
     Dates: start: 20040501
  5. COUMADIN [Concomitant]
     Indication: ATRIAL FIBRILLATION
     Dosage: 5-7.5MG QD
     Route: 065
     Dates: start: 20050101
  6. ALTACE [Concomitant]
     Indication: BLOOD PRESSURE MANAGEMENT
     Route: 065
     Dates: start: 20090512, end: 20090918

REACTIONS (4)
  - DIZZINESS [None]
  - HEADACHE [None]
  - LIVER FUNCTION TEST ABNORMAL [None]
  - NAUSEA [None]
